FAERS Safety Report 5314275-8 (Version None)
Quarter: 2007Q1

REPORT INFORMATION
  Report Type: 
  Country: None (occurrence: None)
  Receive Date: 20070130
  Receipt Date: 20060131
  Transmission Date: 20070707
  Serious: Yes (Hospitalization)
  Sender: FDA-Public Use
  Company Number: 144430USA

PATIENT
  Sex: Male

DRUGS (1)
  1. COPAXONE [Suspect]
     Indication: MULTIPLE SCLEROSIS
     Dosage: (20 MG), SUBCUTANEOUS
     Route: 058

REACTIONS (8)
  - GINGIVAL OEDEMA [None]
  - HYPERSENSITIVITY [None]
  - OCULAR HYPERAEMIA [None]
  - RASH [None]
  - STOMATITIS [None]
  - THROAT TIGHTNESS [None]
  - TONGUE DISORDER [None]
  - URTICARIA [None]
